FAERS Safety Report 7584228-8 (Version None)
Quarter: 2011Q2

REPORT INFORMATION
  Report Type: 
  Country: None (occurrence: None)
  Receive Date: 20110630
  Receipt Date: 20110517
  Transmission Date: 20111010
  Serious: Yes (Other)
  Sender: FDA-Public Use
  Company Number: GB-PFIZER INC-2011109066

PATIENT
  Age: 29 Year
  Sex: Female

DRUGS (15)
  1. HYDROCORTISONE SODIUM SUCCINATE [Suspect]
     Indication: RASH ERYTHEMATOUS
     Dosage: 20 MG, UNK
     Route: 042
  2. ACICLOVIR [Concomitant]
     Indication: HERPES VIRUS INFECTION
     Dosage: 800 MG, FIVE TIMES DAILY
     Route: 048
  3. COMBIVIR [Concomitant]
     Dosage: UNK
  4. ACICLOVIR [Concomitant]
     Indication: NECROTISING RETINITIS
     Dosage: 10 MG/KG, 3X/DAY
     Route: 042
  5. CHLORPHENIRAMINE MALEATE [Concomitant]
     Indication: RASH
     Dosage: 20 MG, UNK
     Route: 042
  6. FAMCICLOVIR [Concomitant]
     Route: 048
  7. DEXAMETHASONE [Concomitant]
     Indication: NECROTISING RETINITIS
     Dosage: 0.1%, 4X/DAY, EYE DROPS
     Route: 061
  8. ACICLOVIR [Concomitant]
     Dosage: 400 MG, 4X/DAY
     Route: 048
  9. CHLORPHENIRAMINE MALEATE [Concomitant]
     Indication: RASH ERYTHEMATOUS
  10. CHLORPHENIRAMINE MALEATE [Concomitant]
     Indication: ANGIOEDEMA
  11. CETIRIZINE [Concomitant]
     Dosage: 40 MG, 1X/DAY
     Route: 048
  12. HYDROCORTISONE SODIUM SUCCINATE [Suspect]
     Indication: RASH
     Dosage: 100 MG, UNK
     Route: 042
  13. HYDROCORTISONE SODIUM SUCCINATE [Suspect]
     Indication: ANGIOEDEMA
     Dosage: 50 MG, 3X/DAY
     Route: 042
  14. PREDNISOLONE [Concomitant]
     Dosage: 40 MG, UNK
     Route: 048
  15. NEVIRAPINE [Concomitant]
     Dosage: UNK

REACTIONS (1)
  - CD4 LYMPHOCYTES DECREASED [None]
